FAERS Safety Report 6805194-6 (Version None)
Quarter: 2010Q2

REPORT INFORMATION
  Report Type: 
  Country: None (occurrence: None)
  Receive Date: 20100628
  Receipt Date: 20070913
  Transmission Date: 20101027
  Serious: Yes (Other)
  Sender: FDA-Public Use
  Company Number: US-PFIZER INC-2007065659

PATIENT
  Age: 49 Year
  Sex: Male
  Weight: 87.5 kg

DRUGS (2)
  1. CADUET [Suspect]
     Indication: HYPERCHOLESTEROLAEMIA
     Dosage: 10MG/20MG
     Route: 048
     Dates: start: 20060606, end: 20070628
  2. CADUET [Suspect]
     Indication: HYPERTENSION

REACTIONS (1)
  - BLOOD CREATINE PHOSPHOKINASE INCREASED [None]
